FAERS Safety Report 16368441 (Version 4)
Quarter: 2022Q2

REPORT INFORMATION
  Report Type: Spontaneous
  Country: US (occurrence: IL)
  Receive Date: 20190529
  Receipt Date: 20220523
  Transmission Date: 20220721
  Serious: Yes (Hospitalization, Other)
  Sender: FDA-Public Use
  Company Number: US-JNJFOC-20190539972

PATIENT
  Age: 44 Year
  Sex: Male

DRUGS (1)
  1. EVICEL [Suspect]
     Active Substance: FIBRINOGEN HUMAN\THROMBIN HUMAN
     Indication: Product used for unknown indication
     Route: 061
     Dates: start: 20140119, end: 20140119

REACTIONS (7)
  - Lymphoma [Unknown]
  - Chronic lymphocytic leukaemia [Unknown]
  - Granuloma [Unknown]
  - Papilloedema [Unknown]
  - Diplopia [Unknown]
  - Headache [Unknown]
  - Iron deficiency anaemia [Unknown]

NARRATIVE: CASE EVENT DATE: 20150601
